FAERS Safety Report 14236160 (Version 1)
Quarter: 2017Q4

REPORT INFORMATION
  Report Type: Other
  Country: None (occurrence: US)
  Receive Date: 20171129
  Receipt Date: 20171129
  Transmission Date: 20180321
  Serious: No
  Sender: FDA-Public Use
  Company Number: US-EXELTIS USA INC.-2036291

PATIENT
  Age: 51 Year
  Sex: Male

DRUGS (1)
  1. ECOZA [Suspect]
     Active Substance: ECONAZOLE NITRATE
     Indication: ERYTHEMA
     Route: 061
     Dates: start: 20161117, end: 20161118

REACTIONS (3)
  - Product use issue [Not Recovered/Not Resolved]
  - Incorrect dose administered [Not Recovered/Not Resolved]
  - Burning sensation [Not Recovered/Not Resolved]
